FAERS Safety Report 11937519 (Version 2)
Quarter: 2016Q2

REPORT INFORMATION
  Report Type: Spontaneous
  Country: GB (occurrence: GB)
  Receive Date: 20160121
  Receipt Date: 20160404
  Transmission Date: 20160815
  Serious: Yes (Other)
  Sender: FDA-Public Use
  Company Number: GB-JNJFOC-20160107469

PATIENT
  Sex: Female

DRUGS (1)
  1. CALPOL [Suspect]
     Active Substance: ACETAMINOPHEN
     Indication: ACCIDENTAL EXPOSURE TO PRODUCT
     Route: 048

REACTIONS (3)
  - Choking [Unknown]
  - Accidental exposure to product [Unknown]
  - Syringe issue [Unknown]
